FAERS Safety Report 5808475-8 (Version None)
Quarter: 2008Q3

REPORT INFORMATION
  Report Type: 
  Country: None (occurrence: None)
  Receive Date: 20080710
  Receipt Date: 20080710
  Transmission Date: 20090109
  Serious: No
  Sender: FDA-Public Use
  Company Number: None

PATIENT
  Age: 68 Year
  Sex: Male
  Weight: 61.2356 kg

DRUGS (3)
  1. DOXAZOSIN MESYLATE [Suspect]
     Indication: PROSTATOMEGALY
     Dosage: 4MG X 2 DAILY
     Dates: start: 20080401, end: 20080606
  2. BONIVA [Concomitant]
  3. FINASTERIDE [Concomitant]

REACTIONS (3)
  - DRUG INEFFECTIVE [None]
  - DYSURIA [None]
  - PHARMACEUTICAL PRODUCT COMPLAINT [None]
